FAERS Safety Report 10596862 (Version 1)
Quarter: 2014Q4

REPORT INFORMATION
  Report Type: Spontaneous
  Country: FR (occurrence: FR)
  Receive Date: 20141120
  Receipt Date: 20141120
  Transmission Date: 20150529
  Serious: Yes (Death, Other)
  Sender: FDA-Public Use
  Company Number: US-ASTRAZENECA-2014SE87592

PATIENT
  Age: 3 Month
  Sex: Female

DRUGS (1)
  1. SYNAGIS [Suspect]
     Active Substance: PALIVIZUMAB
     Indication: ANTIVIRAL PROPHYLAXIS
     Route: 030
     Dates: start: 201410, end: 20141110

REACTIONS (4)
  - Nasal congestion [Unknown]
  - Vomiting [Unknown]
  - Cardiac arrest [Fatal]
  - Bronchiolitis [Unknown]

NARRATIVE: CASE EVENT DATE: 20141113
